FAERS Safety Report 23830409 (Version 5)
Quarter: 2024Q2

REPORT INFORMATION
  Report Type: Spontaneous
  Country: JP (occurrence: JP)
  Receive Date: 20240508
  Receipt Date: 20240626
  Transmission Date: 20240716
  Serious: Yes (Death, Life-Threatening, Hospitalization, Other)
  Sender: FDA-Public Use
  Company Number: JP-ferring-EVA202400670FERRINGPH

PATIENT

DRUGS (2)
  1. DEGARELIX [Suspect]
     Active Substance: DEGARELIX
     Indication: Prostate cancer
     Dosage: 240 MG (120 MG X 2)
     Route: 058
     Dates: start: 20240418, end: 20240418
  2. CASODEX [Concomitant]
     Active Substance: BICALUTAMIDE
     Indication: Prostate cancer
     Dosage: 80 MG, DAILY
     Route: 048
     Dates: start: 20240418, end: 20240419

REACTIONS (8)
  - Cerebral infarction [Fatal]
  - Hepatitis fulminant [Fatal]
  - Altered state of consciousness [Fatal]
  - Renal disorder [Fatal]
  - Multiple organ dysfunction syndrome [Fatal]
  - Electrolyte imbalance [Recovered/Resolved]
  - Blood pressure decreased [Unknown]
  - Urine output decreased [Unknown]

NARRATIVE: CASE EVENT DATE: 20240423
